FAERS Safety Report 9197947 (Version 1)
Quarter: 2013Q1

REPORT INFORMATION
  Report Type: Spontaneous
  Country: BR (occurrence: BR)
  Receive Date: 20130328
  Receipt Date: 20130328
  Transmission Date: 20140127
  Serious: Yes (Hospitalization)
  Sender: FDA-Public Use
  Company Number: BR-SANOFI-AVENTIS-2013SA031380

PATIENT
  Age: 65 Year
  Sex: Female

DRUGS (1)
  1. CLEXANE [Suspect]
     Indication: EMBOLISM
     Route: 058
     Dates: start: 20130212

REACTIONS (2)
  - Cerebral artery embolism [Not Recovered/Not Resolved]
  - Drug ineffective [Not Recovered/Not Resolved]
